FAERS Safety Report 7226991-1 (Version None)
Quarter: 2011Q1

REPORT INFORMATION
  Report Type: 
  Country: None (occurrence: None)
  Receive Date: 20110105
  Receipt Date: 20101223
  Transmission Date: 20110831
  Serious: Yes (Other)
  Sender: FDA-Public Use
  Company Number: 1000017962

PATIENT
  Age: 39 Year
  Sex: Female
  Weight: 60 kg

DRUGS (3)
  1. ESCITALOPRAM [Suspect]
     Indication: DEPRESSION
     Dosage: 40 MG (40 MG, 1 IN 1 D), ORAL
     Route: 048
     Dates: start: 20050101
  2. ESCITALOPRAM [Suspect]
     Indication: BIPOLAR DISORDER
     Dosage: 40 MG (40 MG, 1 IN 1 D), ORAL
     Route: 048
     Dates: start: 20050101
  3. MIRENA [Suspect]
     Dosage: (52 MG), INTRAUTERINE
     Route: 015
     Dates: start: 20030402, end: 20090209

REACTIONS (3)
  - PREMATURE MENOPAUSE [None]
  - AMENORRHOEA [None]
  - OVERDOSE [None]
